APPROVED DRUG PRODUCT: SULLA
Active Ingredient: SULFAMETER
Strength: 500MG
Dosage Form/Route: TABLET;ORAL
Application: N016000 | Product #002
Applicant: BAYER HEALTHCARE PHARMACEUTICALS INC
Approved: Approved Prior to Jan 1, 1982 | RLD: No | RS: No | Type: DISCN